FAERS Safety Report 6354709-3 (Version None)
Quarter: 2009Q3

REPORT INFORMATION
  Report Type: 
  Country: None (occurrence: None)
  Receive Date: 20090914
  Receipt Date: 20090908
  Transmission Date: 20100115
  Serious: Yes (Other)
  Sender: FDA-Public Use
  Company Number: US-ELI_LILLY_AND_COMPANY-US200909001725

PATIENT
  Sex: Female

DRUGS (3)
  1. HUMALOG [Suspect]
  2. LANTUS [Concomitant]
  3. VALIUM [Concomitant]

REACTIONS (6)
  - BLOOD GLUCOSE DECREASED [None]
  - DEPRESSED MOOD [None]
  - DIZZINESS [None]
  - HYPOGLYCAEMIC UNCONSCIOUSNESS [None]
  - TREMOR [None]
  - VERTIGO [None]
